FAERS Safety Report 14268605 (Version 1)
Quarter: 2017Q4

REPORT INFORMATION
  Report Type: Report from Study
  Country: GB (occurrence: GB)
  Receive Date: 20171211
  Receipt Date: 20171211
  Transmission Date: 20180321
  Serious: Yes (Other)
  Sender: FDA-Public Use
  Company Number: GB-JNJFOC-20171211037

PATIENT
  Age: 78 Year
  Sex: Male
  Weight: 68.03 kg

DRUGS (8)
  1. DALTEPARIN [Concomitant]
     Active Substance: DALTEPARIN
     Route: 065
     Dates: start: 20171002, end: 20171031
  2. DOXAZOSIN [Concomitant]
     Active Substance: DOXAZOSIN\DOXAZOSIN MESYLATE
     Indication: PROPHYLAXIS
     Route: 065
     Dates: start: 20160421
  3. XARELTO [Suspect]
     Active Substance: RIVAROXABAN
     Indication: THROMBOSIS PROPHYLAXIS
     Route: 048
     Dates: start: 20171031
  4. REFRESH CELLUVISC [Concomitant]
     Active Substance: CARBOXYMETHYLCELLULOSE SODIUM
     Indication: PROPHYLAXIS
     Dosage: 1 DROP 4X DAY TO BOTH EYES
     Route: 065
     Dates: start: 20111011
  5. LISINOPRIL. [Concomitant]
     Active Substance: LISINOPRIL
     Indication: PROPHYLAXIS
     Route: 065
     Dates: start: 20150130
  6. TAMSULOSIN [Concomitant]
     Active Substance: TAMSULOSIN
     Indication: PROPHYLAXIS
     Route: 065
     Dates: start: 20140909
  7. DOXYCYCLINE. [Concomitant]
     Active Substance: DOXYCYCLINE
     Indication: PYREXIA
     Route: 065
     Dates: start: 20171115, end: 20171121
  8. AMLODIPINE [Concomitant]
     Active Substance: AMLODIPINE BESYLATE
     Indication: PROPHYLAXIS
     Route: 065
     Dates: start: 20081120

REACTIONS (1)
  - Pyrexia [Recovered/Resolved]

NARRATIVE: CASE EVENT DATE: 20171115
